FAERS Safety Report 10488430 (Version 1)
Quarter: 2014Q4

REPORT INFORMATION
  Report Type: Spontaneous
  Country: US (occurrence: None)
  Receive Date: 20141001
  Receipt Date: 20141001
  Transmission Date: 20150528
  Serious: Yes (Other)
  Sender: FDA-Public Use
  Company Number: None

PATIENT
  Age: 60 Year
  Sex: Female
  Weight: 58.06 kg

DRUGS (1)
  1. PREMARIN [Suspect]
     Active Substance: ESTROGENS, CONJUGATED
     Indication: ATROPHIC VULVOVAGINITIS
     Dosage: 0.5 MG CREAM ONCE DAILY VAGINAL
     Route: 067
     Dates: start: 20140926, end: 20140930

REACTIONS (3)
  - Burning sensation [None]
  - Swelling [None]
  - Pain [None]

NARRATIVE: CASE EVENT DATE: 20140930
